FAERS Safety Report 12772255 (Version 1)
Quarter: 2016Q3

REPORT INFORMATION
  Report Type: Spontaneous
  Country: US (occurrence: US)
  Receive Date: 20160922
  Receipt Date: 20160922
  Transmission Date: 20161109
  Serious: No
  Sender: FDA-Public Use
  Company Number: US-UNICHEM LABORATORIES LIMITED-UCM201508-000701

PATIENT
  Age: 79 Year
  Sex: Female
  Weight: 50.06 kg

DRUGS (2)
  1. AMLODIPINE [Concomitant]
     Active Substance: AMLODIPINE BESYLATE
     Indication: HYPERTENSION
  2. BISOPROLOL FUMARATE 10 MG TABLET [Suspect]
     Active Substance: BISOPROLOL FUMARATE
     Indication: CARDIAC FAILURE CONGESTIVE
     Route: 048
     Dates: end: 201502

REACTIONS (2)
  - Hot flush [Recovered/Resolved]
  - Off label use [Unknown]
